FAERS Safety Report 12447248 (Version 1)
Quarter: 2016Q2

REPORT INFORMATION
  Report Type: Spontaneous
  Country: US (occurrence: None)
  Receive Date: 20160607
  Receipt Date: 20160607
  Transmission Date: 20160815
  Serious: Yes (Disabling)
  Sender: FDA-Public Use
  Company Number: None

PATIENT
  Age: 60 Year
  Sex: Female
  Weight: 77.11 kg

DRUGS (18)
  1. CYCLOBENZAPRINE [Concomitant]
     Active Substance: CYCLOBENZAPRINE
  2. DULOXETINE 60MG. CAP (GENERIC FOR CYMBALTA TA) CIT [Suspect]
     Active Substance: DULOXETINE
     Indication: PAIN
     Route: 048
     Dates: start: 20160414, end: 20160417
  3. VIT. D3 [Concomitant]
  4. LEVOFLOXACIN 500MG. TAB. (GENERIC FOR LEVAQUIN)(ZYD) (NO REFILLS) [Concomitant]
     Active Substance: LEVOFLOXACIN
  5. TURMERIC [Concomitant]
     Active Substance: TURMERIC
  6. ACETAMINOPHEN\HYDROCODONE BITARTRATE [Concomitant]
     Active Substance: ACETAMINOPHEN\HYDROCODONE BITARTRATE
  7. CLONAZEPAM. [Concomitant]
     Active Substance: CLONAZEPAM
  8. HYDROCHLOROTHIAZIDE. [Concomitant]
     Active Substance: HYDROCHLOROTHIAZIDE
  9. MULTI VITAMINS [Concomitant]
  10. DULOXETINE 60MG. CAP (GENERIC FOR CYMBALTA TA) CIT [Suspect]
     Active Substance: DULOXETINE
     Indication: ANXIETY
     Route: 048
     Dates: start: 20160414, end: 20160417
  11. BIOTIN [Concomitant]
     Active Substance: BIOTIN
  12. CURCUMIN [Concomitant]
     Active Substance: CURCUMIN
  13. METFORMIN [Concomitant]
     Active Substance: METFORMIN HYDROCHLORIDE
  14. LISINOPRIL. [Concomitant]
     Active Substance: LISINOPRIL
  15. HYALURONIC ACID [Concomitant]
     Active Substance: HYALURONIC ACID
  16. VISION FORMULA [Concomitant]
  17. DULOXETINE 60MG. CAP (GENERIC FOR CYMBALTA TA) CIT [Suspect]
     Active Substance: DULOXETINE
     Indication: DEPRESSION
     Route: 048
     Dates: start: 20160414, end: 20160417
  18. PRAVASTATIN [Concomitant]
     Active Substance: PRAVASTATIN\PRAVASTATIN SODIUM

REACTIONS (3)
  - Bowel movement irregularity [None]
  - Dysuria [None]
  - Diverticulitis [None]

NARRATIVE: CASE EVENT DATE: 20160416
